FAERS Safety Report 8510836-3 (Version None)
Quarter: 2012Q3

REPORT INFORMATION
  Report Type: 
  Country: None (occurrence: None)
  Receive Date: 20120716
  Receipt Date: 20120702
  Transmission Date: 20120928
  Serious: Yes (Other)
  Sender: FDA-Public Use
  Company Number: AT-RANBAXY-2012RR-57610

PATIENT
  Age: 21 Year
  Sex: Female

DRUGS (10)
  1. RANITIDINE [Interacting]
     Indication: ANAESTHESIA PROCEDURE
     Dosage: 50 MG
     Route: 065
  2. DICLOFENAC SODIUM [Suspect]
     Indication: ANAESTHESIA
     Dosage: 75 MG, SINGLE
     Route: 065
  3. PROPOFOL [Interacting]
     Dosage: 400 MG, Q1H
     Route: 041
  4. NEOSTIGMINE METHYLSULFATE [Interacting]
     Indication: ANAESTHESIA PROCEDURE
     Dosage: 3.2 MG, SINGLE
     Route: 065
  5. NITROUS OXIDE [Suspect]
     Indication: ANAESTHESIA PROCEDURE
     Dosage: 66% NITROUS OXIDE IN 33% OXYGEN
     Route: 065
  6. FENTANYL [Interacting]
     Indication: ANAESTHESIA PROCEDURE
     Dosage: 0.15 MG
     Route: 065
  7. ROCURONIUM BROMIDE [Suspect]
     Indication: ANAESTHESIA PROCEDURE
     Dosage: 25 G, 1 DOSE
     Route: 065
  8. MIDAZOLAM [Interacting]
     Indication: ANAESTHESIA PROCEDURE
     Dosage: 7.5 MG
     Route: 048
  9. GLYCOPYRROLATE [Suspect]
     Indication: ANAESTHESIA PROCEDURE
     Dosage: 0.6 MG, SINGLE
     Route: 065
  10. PROPOFOL [Interacting]
     Indication: ANAESTHESIA PROCEDURE
     Dosage: 200 MG BOLUS
     Route: 040

REACTIONS (2)
  - ATRIOVENTRICULAR DISSOCIATION [None]
  - DRUG INTERACTION [None]
